FAERS Safety Report 15510118 (Version 1)
Quarter: 2018Q4

REPORT INFORMATION
  Report Type: Spontaneous
  Country: US (occurrence: US)
  Receive Date: 20181016
  Receipt Date: 20181016
  Transmission Date: 20190205
  Serious: No
  Sender: FDA-Public Use
  Company Number: US-AMGEN-USASP2018047849

PATIENT
  Age: 63 Year
  Sex: Male
  Weight: 69.3 kg

DRUGS (1)
  1. NEULASTA [Suspect]
     Active Substance: PEGFILGRASTIM
     Indication: NEUTROPENIA
     Dosage: 6000 MUG, UNK
     Route: 058
     Dates: start: 20180202

REACTIONS (1)
  - Wrong technique in product usage process [Unknown]
